FAERS Safety Report 13727370 (Version 2)
Quarter: 2017Q3

REPORT INFORMATION
  Report Type: Report from Study
  Country: None (occurrence: CA)
  Receive Date: 20170706
  Receipt Date: 20170721
  Transmission Date: 20171127
  Serious: Yes (Hospitalization, Other)
  Sender: FDA-Public Use
  Company Number: CA-ABBVIE-17K-028-1985835-00

PATIENT
  Age: 66 Year
  Sex: Male
  Weight: 90.4 kg

DRUGS (1)
  1. HUMIRA [Suspect]
     Active Substance: ADALIMUMAB
     Indication: CROHN^S DISEASE
     Route: 058
     Dates: start: 20160503, end: 2017

REACTIONS (4)
  - Full blood count decreased [Unknown]
  - Gastrointestinal disorder [Not Recovered/Not Resolved]
  - Small intestinal stenosis [Recovered/Resolved]
  - Intestinal obstruction [Recovered/Resolved]

NARRATIVE: CASE EVENT DATE: 201705
